FAERS Safety Report 11095694 (Version 2)
Quarter: 2015Q3

REPORT INFORMATION
  Report Type: Spontaneous
  Country: BG (occurrence: BG)
  Receive Date: 20150507
  Receipt Date: 20150710
  Transmission Date: 20151125
  Serious: Yes (Death, Life-Threatening, Hospitalization, Disabling)
  Sender: FDA-Public Use
  Company Number: PHHY2015BG052852

PATIENT
  Age: 60 Year
  Sex: Male

DRUGS (1)
  1. METFORMIN [Suspect]
     Active Substance: METFORMIN HYDROCHLORIDE
     Indication: PRODUCT USED FOR UNKNOWN INDICATION
     Dosage: UNK
     Route: 065

REACTIONS (8)
  - Drug clearance decreased [Unknown]
  - Cardiopulmonary failure [Fatal]
  - Urosepsis [Fatal]
  - Drug level increased [Unknown]
  - Pulmonary embolism [Fatal]
  - Condition aggravated [Unknown]
  - Gastroduodenitis [Fatal]
  - Gastroenteritis [Fatal]
